FAERS Safety Report 23467960 (Version 1)
Quarter: 2024Q1

REPORT INFORMATION
  Report Type: Report from Study
  Country: US (occurrence: US)
  Receive Date: 20240201
  Receipt Date: 20240201
  Transmission Date: 20240410
  Serious: Yes (Hospitalization, Other)
  Sender: FDA-Public Use
  Company Number: US-AURINIA PHARMACEUTICALS INC.-AUR-004404

PATIENT
  Age: 23 Year
  Sex: Female

DRUGS (3)
  1. LUPKYNIS [Suspect]
     Active Substance: VOCLOSPORIN
     Indication: Lupus nephritis
     Dosage: 23.7 MILLIGRAM, BID
     Route: 048
     Dates: end: 20230929
  2. LUPKYNIS [Suspect]
     Active Substance: VOCLOSPORIN
     Dosage: 23.7 MILLIGRAM, BID
     Route: 048
     Dates: start: 20230914
  3. LISINOPRIL [Concomitant]
     Active Substance: LISINOPRIL
     Indication: Product used for unknown indication

REACTIONS (12)
  - Pain [Recovered/Resolved]
  - Cerebral ischaemia [Unknown]
  - Urine protein/creatinine ratio increased [Unknown]
  - Acute kidney injury [Unknown]
  - Inflammatory marker increased [Recovering/Resolving]
  - Viral infection [Recovered/Resolved]
  - Nausea [Unknown]
  - Proteinuria [Not Recovered/Not Resolved]
  - Blood albumin abnormal [Recovering/Resolving]
  - Haematuria [Recovering/Resolving]
  - Pyuria [Recovering/Resolving]
  - Serology abnormal [Recovering/Resolving]

NARRATIVE: CASE EVENT DATE: 20231002
